FAERS Safety Report 9916618 (Version 1)
Quarter: 2014Q1

REPORT INFORMATION
  Report Type: Report from Study
  Country: BR (occurrence: BR)
  Receive Date: 20140221
  Receipt Date: 20140221
  Transmission Date: 20141002
  Serious: Yes (Other)
  Sender: FDA-Public Use
  Company Number: PHHY2014BR021211

PATIENT
  Sex: Female
  Weight: 75 kg

DRUGS (2)
  1. ACLASTA [Suspect]
     Indication: OSTEOPOROSIS
     Dosage: 5 MG, UNK
     Route: 042
     Dates: start: 201302
  2. DIOVAN [Concomitant]
     Indication: HYPERTENSION
     Dosage: UNK UKN, UNK
     Dates: start: 2002

REACTIONS (4)
  - Post procedural complication [Recovering/Resolving]
  - Conjunctivitis [Recovering/Resolving]
  - Intraocular pressure test abnormal [Recovering/Resolving]
  - Hypertension [Recovering/Resolving]
